FAERS Safety Report 7546862-0 (Version None)
Quarter: 2011Q2

REPORT INFORMATION
  Report Type: 
  Country: None (occurrence: None)
  Receive Date: 20110524
  Receipt Date: 20110301
  Transmission Date: 20111010
  Serious: Yes (Other)
  Sender: FDA-Public Use
  Company Number: 028465

PATIENT
  Sex: Female
  Weight: 63.5036 kg

DRUGS (9)
  1. MAXAIR [Concomitant]
  2. MERCAPTOPURINE [Suspect]
     Indication: CROHN'S DISEASE
     Dosage: (100 MG QD ORAL) ; (DOSE INCREASED ORAL)
     Route: 048
     Dates: end: 20110101
  3. MERCAPTOPURINE [Suspect]
     Indication: CROHN'S DISEASE
     Dosage: (100 MG QD ORAL) ; (DOSE INCREASED ORAL)
     Route: 048
     Dates: start: 20110101
  4. CIMZIA [Suspect]
     Indication: CROHN'S DISEASE
     Dosage: SEE IMAGE
     Route: 058
     Dates: start: 20100709, end: 20100101
  5. CIMZIA [Suspect]
     Indication: CROHN'S DISEASE
     Dosage: SEE IMAGE
     Route: 058
     Dates: start: 20101022
  6. CIMZIA [Suspect]
     Indication: CROHN'S DISEASE
     Dosage: SEE IMAGE
     Route: 058
     Dates: start: 20110128
  7. CIMZIA [Suspect]
     Indication: CROHN'S DISEASE
     Dosage: SEE IMAGE
     Route: 058
     Dates: start: 20100924, end: 20100101
  8. ALBUTEROL [Concomitant]
  9. NEXIUM /01479303/ [Concomitant]

REACTIONS (3)
  - DRUG INEFFECTIVE [None]
  - VASCULITIS [None]
  - CROHN'S DISEASE [None]
